FAERS Safety Report 6337000-0 (Version None)
Quarter: 2009Q3

REPORT INFORMATION
  Report Type: 
  Country: None (occurrence: None)
  Receive Date: 20090901
  Receipt Date: 20090821
  Transmission Date: 20100115
  Serious: Yes (Death, Hospitalization)
  Sender: FDA-Public Use
  Company Number: IN-BAXTER-2009BH012976

PATIENT
  Age: 48 Year
  Sex: Female

DRUGS (2)
  1. DIANEAL [Suspect]
     Indication: PERITONEAL DIALYSIS
     Route: 033
     Dates: start: 20090813, end: 20090821
  2. DIANEAL [Suspect]
     Route: 033
     Dates: start: 20090813, end: 20090821

REACTIONS (4)
  - CARDIAC ARREST [None]
  - GASTROINTESTINAL INFECTION [None]
  - HYPOKALAEMIA [None]
  - PERITONITIS [None]
